FAERS Safety Report 7598505-8 (Version None)
Quarter: 2011Q3

REPORT INFORMATION
  Report Type: 
  Country: None (occurrence: None)
  Receive Date: 20110708
  Receipt Date: 20110629
  Transmission Date: 20111222
  Serious: Yes (Hospitalization)
  Sender: FDA-Public Use
  Company Number: US-RB-026776-11

PATIENT
  Age: 24 Year
  Sex: Male

DRUGS (3)
  1. SUBOXONE [Suspect]
     Dosage: SUBLINGUAL FILM, DOSAGE UNKNOWN
     Route: 065
  2. SUBOXONE [Suspect]
     Indication: PRODUCT USED FOR UNKNOWN INDICATION
     Dosage: SUBLINGUAL FILM- DOSING INFORMATION UNKNOWN - DOCTOR HAS BEEN TAPERING HIM
     Route: 065
  3. ANTIDEPRESSANT [Suspect]
     Indication: PRODUCT USED FOR UNKNOWN INDICATION
     Dosage: DOSAGE INFORMATION UNKNOWN
     Route: 065

REACTIONS (17)
  - SOMNOLENCE [None]
  - SUICIDAL IDEATION [None]
  - DECREASED APPETITE [None]
  - DEPRESSION [None]
  - IMPAIRED HEALING [None]
  - ROAD TRAFFIC ACCIDENT [None]
  - FATIGUE [None]
  - APATHY [None]
  - WEIGHT DECREASED [None]
  - FALL [None]
  - DRUG WITHDRAWAL SYNDROME [None]
  - UPPER LIMB FRACTURE [None]
  - PAIN [None]
  - INTENTIONAL OVERDOSE [None]
  - FACIAL BONES FRACTURE [None]
  - DECREASED INTEREST [None]
  - DRUG DEPENDENCE [None]
